FAERS Safety Report 8847240 (Version 1)
Quarter: 2012Q4

REPORT INFORMATION
  Report Type: 
  Country: SK (occurrence: SK)
  Receive Date: 20121018
  Receipt Date: 20121018
  Transmission Date: 20130627
  Serious: Yes (Hospitalization)
  Sender: FDA-Public Use
  Company Number: PHHY2012SK090454

PATIENT
  Age: 85 Year
  Sex: Female

DRUGS (2)
  1. KETONAL [Suspect]
     Dosage: 100 mg
     Route: 042
     Dates: start: 20120828, end: 20120904
  2. VALSACOR [Suspect]
     Dosage: 160 mg
     Route: 048

REACTIONS (2)
  - Hyperkalaemia [Recovered/Resolved]
  - Drug interaction [Unknown]
